FAERS Safety Report 17217562 (Version 1)
Quarter: 2019Q4

REPORT INFORMATION
  Report Type: Spontaneous
  Country: GB (occurrence: GB)
  Receive Date: 20191231
  Receipt Date: 20191231
  Transmission Date: 20200122
  Serious: Yes (Hospitalization, Other)
  Sender: FDA-Public Use
  Company Number: GB-AUROBINDO-AUR-APL-2019-065737

PATIENT
  Age: 69 Year
  Sex: Female

DRUGS (6)
  1. METOCLOPRAMIDE. [Suspect]
     Active Substance: METOCLOPRAMIDE
     Indication: MIGRAINE
     Dosage: UNK
     Route: 065
  2. IBUPROFEN. [Concomitant]
     Active Substance: IBUPROFEN
     Indication: PRODUCT USED FOR UNKNOWN INDICATION
     Dosage: UNK
     Route: 065
  3. PARACETAMOL [Concomitant]
     Active Substance: ACETAMINOPHEN
     Indication: PRODUCT USED FOR UNKNOWN INDICATION
     Dosage: UNK
     Route: 065
  4. DEPO MEDRONE WITH LIDOCAINE [Suspect]
     Active Substance: LIDOCAINE\METHYLPREDNISOLONE ACETATE
     Indication: PRODUCT USED FOR UNKNOWN INDICATION
     Dosage: UNK
     Route: 065
  5. AMITRIPTYLINE [Concomitant]
     Active Substance: AMITRIPTYLINE
     Indication: PRODUCT USED FOR UNKNOWN INDICATION
     Dosage: UNK
     Route: 065
  6. SUMATRIPTAN TABLET [Suspect]
     Active Substance: SUMATRIPTAN
     Indication: MIGRAINE
     Dosage: ONE TABLET 3-4 TIMES EVERY 24 HOURS
     Route: 048
     Dates: end: 20190926

REACTIONS (9)
  - Tongue biting [Unknown]
  - Seizure [Unknown]
  - Migraine [Unknown]
  - Therapeutic product effect variable [Unknown]
  - Loss of consciousness [Unknown]
  - Malaise [Unknown]
  - Tongue haemorrhage [Unknown]
  - Intentional overdose [Unknown]
  - Pain [Unknown]

NARRATIVE: CASE EVENT DATE: 20190828
